FAERS Safety Report 11873772 (Version 1)
Quarter: 2015Q4

REPORT INFORMATION
  Report Type: Spontaneous
  Country: JP (occurrence: JP)
  Receive Date: 20151229
  Receipt Date: 20151229
  Transmission Date: 20160305
  Serious: Yes (Hospitalization)
  Sender: FDA-Public Use
  Company Number: JP-DSJP-DSJ-2015-139198

PATIENT

DRUGS (5)
  1. GASRICK D [Concomitant]
     Active Substance: FAMOTIDINE
     Dosage: 20 MG, UNK
     Route: 065
  2. ADALAT [Concomitant]
     Active Substance: NIFEDIPINE
     Dosage: 20 MG, UNK
     Route: 065
  3. UBRETID [Concomitant]
     Active Substance: DISTIGMINE BROMIDE
     Dosage: 5 MG, UNK
     Route: 065
  4. LIXIANA TABLETS 60MG [Suspect]
     Active Substance: EDOXABAN TOSILATE MONOHYDRATE
     Indication: ATRIAL FIBRILLATION
     Dosage: 30 MG, QD
     Route: 048
     Dates: start: 20150701, end: 20151203
  5. HALFDIGOXIN [Concomitant]
     Active Substance: DIGOXIN
     Dosage: 0.125 MG, UNK
     Route: 065

REACTIONS (1)
  - Gastrointestinal haemorrhage [Recovered/Resolved]

NARRATIVE: CASE EVENT DATE: 20151202
